FAERS Safety Report 15950955 (Version 1)
Quarter: 2019Q1

REPORT INFORMATION
  Report Type: Spontaneous
  Country: IN (occurrence: IN)
  Receive Date: 20190212
  Receipt Date: 20190212
  Transmission Date: 20190417
  Serious: Yes (Hospitalization, Other)
  Sender: FDA-Public Use
  Company Number: IN-BAUSCH-BL-2019-003845

PATIENT
  Age: 24 Year
  Sex: Female

DRUGS (11)
  1. DEXAMETHASONE. [Suspect]
     Active Substance: DEXAMETHASONE
     Indication: VASCULITIS
     Dosage: DOSE TAPERED
     Route: 065
  2. LEVETIRACETAM. [Concomitant]
     Active Substance: LEVETIRACETAM
     Indication: MENINGITIS TUBERCULOUS
     Route: 042
  3. PHENYTOIN. [Concomitant]
     Active Substance: PHENYTOIN
     Indication: MENINGITIS TUBERCULOUS
  4. LEVETIRACETAM. [Concomitant]
     Active Substance: LEVETIRACETAM
     Indication: VASCULITIS
  5. MANNITOL. [Concomitant]
     Active Substance: MANNITOL
     Indication: MENINGITIS TUBERCULOUS
  6. RIFAMPICIN [Concomitant]
     Active Substance: RIFAMPIN
     Indication: MENINGITIS TUBERCULOUS
  7. MANNITOL. [Concomitant]
     Active Substance: MANNITOL
     Indication: VASCULITIS
     Route: 042
  8. ETHAMBUTOL [Concomitant]
     Active Substance: ETHAMBUTOL HYDROCHLORIDE
     Indication: MENINGITIS TUBERCULOUS
  9. PYRAZINAMIDE. [Concomitant]
     Active Substance: PYRAZINAMIDE
     Indication: MENINGITIS TUBERCULOUS
  10. DEXAMETHASONE. [Suspect]
     Active Substance: DEXAMETHASONE
     Indication: MENINGITIS TUBERCULOUS
     Route: 065
  11. ISONIAZID. [Concomitant]
     Active Substance: ISONIAZID
     Indication: MENINGITIS TUBERCULOUS

REACTIONS (5)
  - Oesophageal candidiasis [Recovering/Resolving]
  - Drug-induced liver injury [Recovering/Resolving]
  - Gastric ulcer [Recovering/Resolving]
  - Oral candidiasis [Recovering/Resolving]
  - Cytomegalovirus gastritis [Recovering/Resolving]
